FAERS Safety Report 4606222-9 (Version None)
Quarter: 2005Q1

REPORT INFORMATION
  Report Type: 
  Country: None (occurrence: None)
  Receive Date: 20050116
  Receipt Date: 20040622
  Transmission Date: 20050727
  Serious: No
  Sender: FDA-Public Use
  Company Number: K200400943

PATIENT
  Age: 24 Year
  Sex: Female

DRUGS (1)
  1. EPIPEN [Suspect]
     Dosage: 0.3 MG, SINGLE, INTRAMUSCULAR
     Route: 030
     Dates: start: 20040619, end: 20040619

REACTIONS (1)
  - ACCIDENTAL EXPOSURE [None]
